FAERS Safety Report 7679611-6 (Version None)
Quarter: 2011Q3

REPORT INFORMATION
  Report Type: 
  Country: None (occurrence: None)
  Receive Date: 20110812
  Receipt Date: 20110808
  Transmission Date: 20111222
  Serious: Yes (Hospitalization)
  Sender: FDA-Public Use
  Company Number: US-B.I. PHARMACEUTICALS,INC./RIDGEFIELD-2011-BP-19420BP

PATIENT
  Sex: Female

DRUGS (7)
  1. FUROSEMIDE [Concomitant]
     Indication: OEDEMA
     Dosage: 80 MG
     Route: 048
     Dates: start: 20010101
  2. LIPITOR [Concomitant]
     Indication: BLOOD CHOLESTEROL INCREASED
     Dates: start: 20060101
  3. TOPROL-XL [Concomitant]
     Indication: HYPERTENSION
     Dosage: 100 MG
     Route: 048
     Dates: start: 20060101
  4. SYNTHROID [Concomitant]
     Indication: HYPOTHYROIDISM
     Dosage: 0.137 MG
     Route: 048
     Dates: start: 19800101
  5. POTASSIUM [Concomitant]
     Indication: BLOOD POTASSIUM ABNORMAL
     Dosage: 20 MEQ
     Route: 048
     Dates: start: 20010101
  6. AVAPRO [Concomitant]
     Indication: HYPERTENSION
     Dosage: 75 MG
     Route: 048
     Dates: start: 20030101
  7. PRADAXA [Suspect]
     Indication: ATRIAL FIBRILLATION
     Dosage: 300 MG
     Route: 048
     Dates: start: 20110201

REACTIONS (1)
  - TRANSIENT ISCHAEMIC ATTACK [None]
